FAERS Safety Report 23682913 (Version 2)
Quarter: 2024Q2

REPORT INFORMATION
  Report Type: Spontaneous
  Country: IL (occurrence: IL)
  Receive Date: 20240328
  Receipt Date: 20240415
  Transmission Date: 20240716
  Serious: Yes (Death)
  Sender: FDA-Public Use
  Company Number: IL-AMERICAN REGENT INC-2024001099

PATIENT
  Age: 79 Year
  Sex: Female

DRUGS (1)
  1. FERINJECT [Suspect]
     Active Substance: FERRIC CARBOXYMALTOSE
     Indication: Product used for unknown indication
     Dosage: 500 MG
     Dates: start: 202403, end: 202403

REACTIONS (2)
  - Anaphylactic reaction [Fatal]
  - Product complaint [Unknown]

NARRATIVE: CASE EVENT DATE: 20240301
